FAERS Safety Report 7406495-3 (Version None)
Quarter: 2011Q2

REPORT INFORMATION
  Report Type: 
  Country: None (occurrence: None)
  Receive Date: 20110406
  Receipt Date: 20110406
  Transmission Date: 20111010
  Serious: Yes (Hospitalization)
  Sender: FDA-Public Use
  Company Number: None

PATIENT
  Sex: Female
  Weight: 103.4201 kg

DRUGS (1)
  1. HUCOG 2000 I.U BHARAT SERUMS AND VACCINES LIIMTED [Suspect]
     Indication: WEIGHT CONTROL
     Dosage: 125 I.U. DAILY SQ
     Route: 058
     Dates: start: 20110215, end: 20110325

REACTIONS (1)
  - CEREBROVASCULAR ACCIDENT [None]
